FAERS Safety Report 7327426-0 (Version None)
Quarter: 2011Q1

REPORT INFORMATION
  Report Type: 
  Country: None (occurrence: None)
  Receive Date: 20110303
  Receipt Date: 20101029
  Transmission Date: 20110831
  Serious: Yes (Death, Hospitalization)
  Sender: FDA-Public Use
  Company Number: US-GENZYME-CLOF-1001113

PATIENT
  Sex: Male

DRUGS (5)
  1. CLOFARABINE [Suspect]
     Dates: start: 20090612, end: 20090615
  2. ARA-C [Suspect]
     Dosage: 2350 MG, QD
     Route: 042
     Dates: start: 20090613, end: 20090616
  3. ARA-C [Suspect]
     Indication: ACUTE MYELOID LEUKAEMIA
     Dosage: 2350 MG, UNK
     Route: 042
     Dates: start: 20090430, end: 20090503
  4. CLOFARABINE [Suspect]
     Indication: ACUTE MYELOID LEUKAEMIA
     Dosage: 94 MG, QDX5
     Route: 042
     Dates: start: 20090429, end: 20090503
  5. SIMVASTATIN [Concomitant]
     Indication: PRODUCT USED FOR UNKNOWN INDICATION
     Dosage: UNK
     Route: 048
     Dates: start: 20090429, end: 20090610

REACTIONS (5)
  - BACTERAEMIA [None]
  - MUSCLE DISORDER [None]
  - CARDIAC ARREST [None]
  - PYREXIA [None]
  - HYPOTENSION [None]
